FAERS Safety Report 22624655 (Version 1)
Quarter: 2023Q2

REPORT INFORMATION
  Report Type: Spontaneous
  Country: US (occurrence: US)
  Receive Date: 20230621
  Receipt Date: 20230621
  Transmission Date: 20230722
  Serious: No
  Sender: FDA-Public Use
  Company Number: US-TEVA-2023-US-2895873

PATIENT

DRUGS (1)
  1. LIDOCAINE [Suspect]
     Active Substance: LIDOCAINE
     Indication: Pain
     Route: 062

REACTIONS (6)
  - Drug ineffective [Unknown]
  - Accidental exposure to product [Unknown]
  - Poor quality device used [Unknown]
  - Product adhesion issue [Unknown]
  - Device difficult to use [Unknown]
  - Device defective [Unknown]
